FAERS Safety Report 9286226 (Version 3)
Quarter: 2013Q3

REPORT INFORMATION
  Report Type: Report from Study
  Country: US (occurrence: US)
  Receive Date: 20130513
  Receipt Date: 20130703
  Transmission Date: 20140515
  Serious: Yes (Hospitalization)
  Sender: FDA-Public Use
  Company Number: US-VIIV HEALTHCARE LIMITED-B0855556A

PATIENT
  Age: 52 Year
  Sex: Male
  Weight: 100.9 kg

DRUGS (15)
  1. MARAVIROC [Suspect]
     Indication: HIV INFECTION
     Dosage: 150MG TWICE PER DAY
     Route: 048
     Dates: start: 20090909, end: 20120912
  2. ISENTRESS [Concomitant]
     Indication: HIV INFECTION
     Dosage: 400MG TWICE PER DAY
     Dates: start: 20120912
  3. INTELENCE [Concomitant]
     Indication: HIV INFECTION
     Dosage: 200MG TWICE PER DAY
     Dates: start: 20120912
  4. EPZICOM [Concomitant]
     Indication: HIV INFECTION
     Dates: start: 20060208
  5. NORTRIPTYLINE [Concomitant]
     Indication: DEPRESSION
     Route: 048
  6. METFORMIN [Concomitant]
     Indication: DIABETES MELLITUS
     Route: 048
  7. ESCITALOPRAM [Concomitant]
     Indication: DEPRESSION
     Route: 048
  8. LORAZEPAM [Concomitant]
     Indication: ANXIETY
     Route: 048
  9. LYRICA [Concomitant]
     Indication: PAIN MANAGEMENT
     Route: 048
  10. PRAVACHOL [Concomitant]
     Indication: HYPERTRIGLYCERIDAEMIA
     Route: 048
     Dates: start: 20091014
  11. LOPIL [Concomitant]
     Indication: HYPERTRIGLYCERIDAEMIA
     Route: 048
     Dates: start: 20091111
  12. PRILOSEC [Concomitant]
     Indication: GASTROOESOPHAGEAL REFLUX DISEASE
     Route: 048
     Dates: start: 20120909
  13. VITAMIN D [Concomitant]
     Indication: IMMUNE SYSTEM DISORDER
     Route: 048
     Dates: start: 20100210
  14. PLAVIX [Concomitant]
     Indication: ANTICOAGULANT THERAPY
     Route: 048
     Dates: start: 20081006
  15. COUMADIN [Concomitant]
     Indication: ANTICOAGULANT THERAPY
     Route: 048
     Dates: start: 201105

REACTIONS (2)
  - Acute coronary syndrome [Recovered/Resolved]
  - Myocardial infarction [Unknown]
